FAERS Safety Report 6341476-2 (Version None)
Quarter: 2009Q3

REPORT INFORMATION
  Report Type: 
  Country: None (occurrence: None)
  Receive Date: 20090904
  Receipt Date: 20090824
  Transmission Date: 20100115
  Serious: Yes (Life-Threatening, Other)
  Sender: FDA-Public Use
  Company Number: SI-PFIZER INC-2009240486

PATIENT
  Age: 32 Year

DRUGS (10)
  1. LYRICA [Suspect]
     Indication: PAIN IN EXTREMITY
     Dosage: 150 MG, 2X/DAY
     Route: 048
     Dates: start: 20090712, end: 20090713
  2. LYRICA [Suspect]
     Indication: ISCHAEMIA
  3. EDICIN [Suspect]
     Dosage: 1 G, 1X/DAY
     Route: 042
  4. INSULIN LISPRO [Concomitant]
     Indication: TYPE 1 DIABETES MELLITUS
     Dosage: UNK
     Route: 058
  5. GENTAMICIN [Concomitant]
  6. KLIMICIN [Concomitant]
     Dosage: 300 MG, 4X/DAY
     Route: 048
  7. DIPIDOLOR [Concomitant]
     Dosage: UNK
     Route: 042
  8. TRANSTEC TTS [Concomitant]
     Dosage: 35 UG, UNK
     Route: 062
  9. RAMIPRIL [Concomitant]
     Dosage: 5 MG, 1X/DAY
  10. PANTOPRAZOL [Concomitant]
     Dosage: 40 MG, 4X/DAY
     Route: 048

REACTIONS (3)
  - DRUG LEVEL INCREASED [None]
  - INFLAMMATION [None]
  - RENAL FAILURE ACUTE [None]
